FAERS Safety Report 18174135 (Version 1)
Quarter: 2020Q3

REPORT INFORMATION
  Report Type: Spontaneous
  Country: US (occurrence: US)
  Receive Date: 20200819
  Receipt Date: 20200819
  Transmission Date: 20201103
  Serious: Yes (Hospitalization)
  Sender: FDA-Public Use
  Company Number: None

PATIENT
  Age: 45 Year
  Sex: Female
  Weight: 76.5 kg

DRUGS (2)
  1. DULOXETINE. [Suspect]
     Active Substance: DULOXETINE
     Indication: PREMENSTRUAL DYSPHORIC DISORDER
     Dosage: ?          QUANTITY:1 TABLET(S);?
     Route: 048
     Dates: start: 20190705, end: 20200731
  2. DULOXETINE. [Suspect]
     Active Substance: DULOXETINE
     Indication: OBSESSIVE-COMPULSIVE DISORDER
     Dosage: ?          QUANTITY:1 TABLET(S);?
     Route: 048
     Dates: start: 20190705, end: 20200731

REACTIONS (9)
  - Memory impairment [None]
  - Face injury [None]
  - Visual impairment [None]
  - Gait disturbance [None]
  - Fall [None]
  - Deformity [None]
  - Gait inability [None]
  - Middle insomnia [None]
  - Speech disorder [None]

NARRATIVE: CASE EVENT DATE: 20200731
